FAERS Safety Report 10545642 (Version 2)
Quarter: 2014Q4

REPORT INFORMATION
  Report Type: Report from Study
  Country: CN (occurrence: CN)
  Receive Date: 20141027
  Receipt Date: 20141027
  Transmission Date: 20150529
  Serious: Yes (Hospitalization)
  Sender: FDA-Public Use
  Company Number: CN-ROCHE-1455820

PATIENT
  Sex: Male
  Weight: 61 kg

DRUGS (1)
  1. AVASTIN [Suspect]
     Active Substance: BEVACIZUMAB
     Indication: RECTAL CANCER
     Route: 042
     Dates: start: 20130712, end: 201407

REACTIONS (5)
  - Stoma site haemorrhage [Recovering/Resolving]
  - Metastasis [Not Recovered/Not Resolved]
  - Neoplasm [Recovering/Resolving]
  - Cholecystitis [Unknown]
  - Haemobilia [Not Recovered/Not Resolved]
